FAERS Safety Report 15614794 (Version 3)
Quarter: 2020Q3

REPORT INFORMATION
  Report Type: Spontaneous
  Country: CA (occurrence: CA)
  Receive Date: 20181113
  Receipt Date: 20200730
  Transmission Date: 20201102
  Serious: Yes (Other)
  Sender: FDA-Public Use
  Company Number: CA-JNJFOC-20181103380

PATIENT
  Age: 68 Year
  Sex: Female
  Weight: 66 kg

DRUGS (1)
  1. MOTRIN [Suspect]
     Active Substance: IBUPROFEN
     Indication: PRODUCT USED FOR UNKNOWN INDICATION
     Dosage: 400 MG, 3 EVERY 1 DAYS?START PERIOD: 16 MONTHS
     Route: 048
     Dates: start: 19750805

REACTIONS (3)
  - Hypertension [Unknown]
  - Abdominal pain [Unknown]
  - Gastritis [Unknown]

NARRATIVE: CASE EVENT DATE: 19761204
